FAERS Safety Report 25108531 (Version 1)
Quarter: 2025Q1

REPORT INFORMATION
  Report Type: Spontaneous
  Country: DE (occurrence: DE)
  Receive Date: 20250322
  Receipt Date: 20250322
  Transmission Date: 20250409
  Serious: Yes (Hospitalization)
  Sender: AUROBINDO
  Company Number: DE-DCGMA-25204753

PATIENT
  Age: 4 Year
  Sex: Female
  Weight: 21 kg

DRUGS (5)
  1. ZONISAMIDE [Suspect]
     Active Substance: ZONISAMIDE
     Indication: Epilepsy
     Dosage: 70 MILLIGRAM, ONCE A DAY (30-0-40 MGDAILY DOSE: 70 MG EVERY 1 DAY)
     Route: 048
     Dates: start: 202312, end: 20240810
  2. RIVOTRIL [Concomitant]
     Active Substance: CLONAZEPAM
     Indication: Epilepsy
     Dosage: 2.5 MILLIGRAM, ONCE A DAY (1.25-0-1.25 MGDAILY DOSE: 2.5 MG EVERY 1 DAY)
     Route: 048
     Dates: start: 202002
  3. LAMOTRIGINE [Concomitant]
     Active Substance: LAMOTRIGINE
     Indication: Epilepsy
     Dosage: 100 MILLIGRAM, ONCE A DAY (50-0-50 MGDAILY DOSE: 100 MG EVERY 1 DAY)
     Route: 048
     Dates: start: 202103
  4. CHOLECALCIFEROL [Concomitant]
     Active Substance: CHOLECALCIFEROL
     Indication: Product used for unknown indication
     Dosage: 500 INTERNATIONAL UNIT, ONCE A DAY (DAILY DOSE: 500 [IU] EVERY 1 DAY)
     Route: 048
     Dates: start: 202002
  5. Kinderlax [Concomitant]
     Indication: Constipation
     Route: 048
     Dates: start: 202002

REACTIONS (7)
  - Acidosis [Recovered/Resolved]
  - General physical health deterioration [Recovered/Resolved]
  - Hypotonia [Recovered/Resolved]
  - Apathy [Recovered/Resolved]
  - Vomiting [Recovered/Resolved]
  - Hypophagia [Recovered/Resolved]
  - Fatigue [Recovered/Resolved]

NARRATIVE: CASE EVENT DATE: 20240805
